FAERS Safety Report 11735091 (Version 3)
Quarter: 2019Q1

REPORT INFORMATION
  Report Type: Report from Study
  Country: US (occurrence: US)
  Receive Date: 20151113
  Receipt Date: 20190204
  Transmission Date: 20190417
  Serious: Yes (Hospitalization, Other)
  Sender: FDA-Public Use
  Company Number: US-SA-2015SA179977

PATIENT
  Age: 40 Year
  Sex: Male

DRUGS (1)
  1. ELIGLUSTAT. [Suspect]
     Active Substance: ELIGLUSTAT
     Indication: GAUCHER^S DISEASE
     Dosage: 84 MG,BID
     Route: 048
     Dates: start: 20141001, end: 201608

REACTIONS (5)
  - Eczema [Recovered/Resolved]
  - Psoriasis [Recovered/Resolved]
  - Abscess [Not Recovered/Not Resolved]
  - Dyspepsia [Recovered/Resolved]
  - Diverticulitis [Recovered/Resolved]

NARRATIVE: CASE EVENT DATE: 20151027
